FAERS Safety Report 7537958-8 (Version None)
Quarter: 2011Q2

REPORT INFORMATION
  Report Type: 
  Country: None (occurrence: None)
  Receive Date: 20110609
  Receipt Date: 20110530
  Transmission Date: 20111010
  Serious: Yes (Other)
  Sender: FDA-Public Use
  Company Number: CA-UCBSA-031065

PATIENT
  Sex: Female
  Weight: 84.1 kg

DRUGS (10)
  1. CIMZIA [Suspect]
     Route: 058
     Dates: start: 20110309
  2. ELMIRON [Concomitant]
  3. OXAZEPAM [Concomitant]
     Dosage: ONCE DAILY IN PM
     Route: 048
  4. METHOTREXATE [Concomitant]
     Indication: RHEUMATOID ARTHRITIS
     Route: 058
     Dates: start: 20060901
  5. CIMZIA [Suspect]
     Indication: RHEUMATOID ARTHRITIS
     Dosage: LOADING DOSE WEEKS 0-2-4
     Route: 058
     Dates: start: 20110126, end: 20110223
  6. ABILIFY [Concomitant]
  7. MELOXICAM [Concomitant]
     Route: 048
  8. OXAZEPAM [Concomitant]
     Dosage: ONCE NIGHTLY
     Route: 048
  9. PLAQUENIL [Concomitant]
     Indication: RHEUMATOID ARTHRITIS
     Route: 048
     Dates: start: 20060901
  10. CYESTIA [Concomitant]
     Indication: POLYCYSTIC OVARIES
     Dosage: 35 (UNITS UNSPECIFIED) DAILY

REACTIONS (4)
  - INJECTION SITE REACTION [None]
  - DIABETES MELLITUS [None]
  - IRREGULAR SLEEP PHASE [None]
  - DEPRESSION [None]
